FAERS Safety Report 5682974-4 (Version None)
Quarter: 2008Q1

REPORT INFORMATION
  Report Type: 
  Country: None (occurrence: None)
  Receive Date: 20080327
  Receipt Date: 20080317
  Transmission Date: 20080703
  Serious: Yes (Hospitalization, Other)
  Sender: FDA-Public Use
  Company Number: GB-WYE-G01180508

PATIENT
  Sex: Male
  Weight: 82.6 kg

DRUGS (7)
  1. TORISEL [Suspect]
     Indication: METASTATIC RENAL CELL CARCINOMA
     Dosage: 25MG, FREQUENCY UNKNOWN
     Route: 042
     Dates: start: 20080218, end: 20080218
  2. FELODIPINE [Concomitant]
     Dosage: UNKNOWN
  3. OMEPRAZOLE [Concomitant]
     Route: 048
  4. FERROUS SULFATE TAB [Concomitant]
     Route: 048
  5. FOLIC ACID [Concomitant]
     Route: 048
  6. BENDROFLUMETHIAZIDE [Concomitant]
     Route: 048
  7. PREDNISOLONE [Concomitant]
     Route: 048

REACTIONS (3)
  - ANAPHYLACTIC REACTION [None]
  - LOWER RESPIRATORY TRACT INFECTION [None]
  - MALAISE [None]
